FAERS Safety Report 14071050 (Version 2)
Quarter: 2017Q4

REPORT INFORMATION
  Report Type: Spontaneous
  Country: US (occurrence: US)
  Receive Date: 20171010
  Receipt Date: 20171121
  Transmission Date: 20180321
  Serious: No
  Sender: FDA-Public Use
  Company Number: US-JNJFOC-20170405119

PATIENT
  Age: 80 Year
  Sex: Female

DRUGS (16)
  1. IMBRUVICA [Suspect]
     Active Substance: IBRUTINIB
     Indication: CHRONIC LYMPHOCYTIC LEUKAEMIA
     Route: 048
     Dates: start: 20170110, end: 20171003
  2. DEXTRIN [Concomitant]
     Active Substance: ICODEXTRIN
  3. VACCINIUM MACROCARPON [Concomitant]
     Active Substance: CRANBERRY
  4. IMBRUVICA [Suspect]
     Active Substance: IBRUTINIB
     Indication: CHRONIC LYMPHOCYTIC LEUKAEMIA
     Route: 048
     Dates: start: 20170110
  5. BILBERRY [Concomitant]
     Active Substance: BILBERRY
  6. ORENCIA [Concomitant]
     Active Substance: ABATACEPT
  7. COQ 10 [Concomitant]
     Active Substance: UBIDECARENONE
  8. CINNAMON. [Concomitant]
     Active Substance: CINNAMON
  9. PREDNISONE. [Concomitant]
     Active Substance: PREDNISONE
  10. GINGER. [Concomitant]
     Active Substance: GINGER
  11. IMBRUVICA [Suspect]
     Active Substance: IBRUTINIB
     Indication: CHRONIC LYMPHOCYTIC LEUKAEMIA
     Route: 048
     Dates: start: 20170110
  12. MECLIZINE HYDROCHLORIDE. [Concomitant]
     Active Substance: MECLIZINE HYDROCHLORIDE
  13. FOLIC ACID. [Concomitant]
     Active Substance: FOLIC ACID
  14. DICLOFENAC [Concomitant]
     Active Substance: DICLOFENAC
  15. LOSARTAN POTASSIUM. [Concomitant]
     Active Substance: LOSARTAN POTASSIUM
  16. MULTIVITAMINS [Concomitant]
     Active Substance: VITAMINS

REACTIONS (5)
  - Pain in extremity [Unknown]
  - Vision blurred [Unknown]
  - Arthralgia [Unknown]
  - Product use issue [Unknown]
  - Off label use [Unknown]

NARRATIVE: CASE EVENT DATE: 20170110
